FAERS Safety Report 8397668-4 (Version None)
Quarter: 2012Q2

REPORT INFORMATION
  Report Type: 
  Country: None (occurrence: None)
  Receive Date: 20120531
  Receipt Date: 20120530
  Transmission Date: 20120825
  Serious: Yes (Other)
  Sender: FDA-Public Use
  Company Number: US-PFIZER INC-2012076127

PATIENT
  Sex: Female
  Weight: 63.5 kg

DRUGS (20)
  1. IBUPROFEN [Concomitant]
     Indication: PAIN
     Dosage: 200 MG, AS NEEDED
  2. OXYCODONE AND ACETAMINOPHEN [Concomitant]
     Indication: PAIN
     Dosage: ONE TO TWO TABLETS EVERY 4 HOURS PRN
     Dates: start: 20090128
  3. BENADRYL [Concomitant]
     Dosage: 25 MG, 1X/DAY AT NIGHT
     Dates: start: 20090413
  4. ACETYLSALICYLIC ACID [Concomitant]
     Dosage: UNK
     Dates: start: 20090413
  5. SALINE [Concomitant]
     Dosage: 2 TO 4 TIMES DAILY
     Dates: start: 20091111
  6. CITALOPRAM [Concomitant]
     Dosage: 40 MG DAILY
  7. DIPHENOXYLATE HCL + ATROPINE SULFATE [Concomitant]
     Indication: DIARRHOEA
     Dosage: 2.5 MG Q3 HOURS PRN
  8. CHANTIX [Suspect]
     Dosage: UNK
     Dates: end: 20120413
  9. LEVOTHYROXINE [Concomitant]
     Indication: HYPOTHYROIDISM
     Dosage: 175 MCG DAILY
     Dates: start: 20071030
  10. PRAVASTATIN [Concomitant]
     Indication: BLOOD CHOLESTEROL INCREASED
     Dosage: 40 MG, DAILY
  11. CALCIUM CARBONATE [Concomitant]
     Indication: DYSPEPSIA
     Dosage: UNK
  12. CHANTIX [Suspect]
     Indication: SMOKING CESSATION THERAPY
     Dosage: 1 MG, 2X/DAY
     Route: 048
     Dates: start: 20090128
  13. FLONASE [Concomitant]
     Dosage: 1 TO 2 PUFFS DAILY
     Dates: start: 20091111
  14. CHANTIX [Suspect]
     Dosage: 1 MG, 2X/DAY
     Route: 048
     Dates: start: 20090413, end: 20090901
  15. LORAZEPAM [Concomitant]
     Dosage: 1 MG EVERY 6 HOURS AS NEEDED
  16. PREMARIN [Concomitant]
     Dosage: 0.625 MG, UNK
  17. CHANTIX [Suspect]
     Dosage: 1 MG TABLET 1/2 TABLET IN THE AM, 1/2 TABLET IN THE P.M
     Route: 048
     Dates: start: 20100406
  18. CHANTIX [Suspect]
     Dosage: UNK
     Route: 048
     Dates: start: 20110201
  19. OXYCODONE [Concomitant]
     Indication: FIBROMYALGIA
     Dosage: 5/325 MG, 4X/DAY
  20. CITALOPRAM [Concomitant]
     Indication: FIBROMYALGIA
     Dosage: 10 MG, DAILY
     Dates: start: 20100418

REACTIONS (6)
  - ARTHRALGIA [None]
  - ANXIETY [None]
  - BONE DISORDER [None]
  - NAUSEA [None]
  - PALPITATIONS [None]
  - HEADACHE [None]
